FAERS Safety Report 4739260-6 (Version None)
Quarter: 2005Q3

REPORT INFORMATION
  Report Type: 
  Country: None (occurrence: None)
  Receive Date: 20050808
  Receipt Date: 20050808
  Transmission Date: 20060218
  Serious: Yes (Hospitalization)
  Sender: FDA-Public Use
  Company Number: None

PATIENT
  Age: 75 Year
  Sex: Male
  Weight: 60.3284 kg

DRUGS (1)
  1. GATIFLOXACIN [Suspect]
     Dosage: 400 MG DAILY INTRAVENOUS
     Route: 042
     Dates: start: 20050618, end: 20050620

REACTIONS (5)
  - ABNORMAL BEHAVIOUR [None]
  - ASTHENIA [None]
  - DIARRHOEA [None]
  - FREQUENT BOWEL MOVEMENTS [None]
  - MALAISE [None]
